FAERS Safety Report 9249141 (Version 3)
Quarter: 2013Q2

REPORT INFORMATION
  Report Type: Report from Study
  Country: US (occurrence: US)
  Receive Date: 20130423
  Receipt Date: 20130605
  Transmission Date: 20140414
  Serious: Yes (Hospitalization)
  Sender: FDA-Public Use
  Company Number: US-ACTELION-A-NJ2013-82238

PATIENT
  Age: 82 Year
  Sex: Male

DRUGS (3)
  1. TRACLEER [Suspect]
     Indication: PULMONARY ARTERIAL HYPERTENSION
     Dosage: UNK
     Route: 048
     Dates: start: 20120829
  2. ALBUTEROL [Suspect]
  3. OXYGEN [Concomitant]

REACTIONS (12)
  - Tracheal disorder [Unknown]
  - Staphylococcal infection [Unknown]
  - Blood pressure fluctuation [Unknown]
  - Urinary tract infection [Unknown]
  - Heart rate increased [Unknown]
  - Chronic obstructive pulmonary disease [Unknown]
  - Respiratory failure [Unknown]
  - Dyspnoea [Unknown]
  - Adverse drug reaction [Recovered/Resolved]
  - Decreased activity [Recovered/Resolved]
  - Rhinorrhoea [Not Recovered/Not Resolved]
  - Local swelling [Recovered/Resolved]
